FAERS Safety Report 20688152 (Version 1)
Quarter: 2022Q2

REPORT INFORMATION
  Report Type: Spontaneous
  Country: CA (occurrence: CA)
  Receive Date: 20220408
  Receipt Date: 20220408
  Transmission Date: 20220721
  Serious: Yes (Hospitalization)
  Sender: FDA-Public Use
  Company Number: CA-TEVA-2022-CA-2024405

PATIENT
  Age: 66 Year
  Sex: Female

DRUGS (1)
  1. TRANDOLAPRIL [Suspect]
     Active Substance: TRANDOLAPRIL
     Route: 065

REACTIONS (4)
  - Acute kidney injury [Unknown]
  - Diarrhoea [Unknown]
  - Nausea [Unknown]
  - Renal ischaemia [Unknown]
